FAERS Safety Report 8734520 (Version 4)
Quarter: 2012Q4

REPORT INFORMATION
  Report Type: 
  Country: JP (occurrence: JP)
  Receive Date: 20120821
  Receipt Date: 20120906
  Transmission Date: 20130627
  Serious: Yes (Other)
  Sender: FDA-Public Use
  Company Number: JP-ELI_LILLY_AND_COMPANY-JP201208004259

PATIENT
  Age: 63 Year
  Sex: Male
  Weight: 65 kg

DRUGS (4)
  1. CYMBALTA [Suspect]
     Indication: DIABETIC NEUROPATHY
     Dosage: 40 mg, qd
     Route: 048
     Dates: start: 20120517, end: 20120803
  2. MEXITIL [Concomitant]
     Indication: DIABETIC NEUROPATHY
     Dosage: 150 mg, tid
     Route: 048
     Dates: start: 20070916
  3. TAKEPRON [Concomitant]
     Indication: GASTRITIS
     Dosage: 15 mg, qd
     Route: 048
     Dates: start: 20070916
  4. DEPAKENE [Concomitant]
     Indication: EPILEPSY

REACTIONS (2)
  - Alanine aminotransferase increased [Recovering/Resolving]
  - Aspartate aminotransferase increased [Recovering/Resolving]
